FAERS Safety Report 23551484 (Version 3)
Quarter: 2024Q1

REPORT INFORMATION
  Report Type: Spontaneous
  Country: US (occurrence: US)
  Receive Date: 20240222
  Receipt Date: 20240319
  Transmission Date: 20240410
  Serious: Yes (Hospitalization, Other)
  Sender: FDA-Public Use
  Company Number: US-Blueprint Medicines Corporation-2423

PATIENT
  Sex: Female

DRUGS (1)
  1. AYVAKIT [Suspect]
     Active Substance: AVAPRITINIB
     Indication: Systemic mastocytosis
     Route: 065

REACTIONS (8)
  - Asthma [Unknown]
  - Pneumonia [Unknown]
  - Respiratory tract infection [Unknown]
  - Illness [Unknown]
  - Red blood cell count decreased [Unknown]
  - White blood cell count abnormal [Unknown]
  - Nasopharyngitis [Unknown]
  - Laboratory test abnormal [Recovering/Resolving]
